FAERS Safety Report 4954589-4 (Version None)
Quarter: 2006Q1

REPORT INFORMATION
  Report Type: 
  Country: None (occurrence: None)
  Receive Date: 20060131
  Receipt Date: 20041202
  Transmission Date: 20060701
  Serious: Yes (Other)
  Sender: FDA-Public Use
  Company Number: WAES 0412USA00299

PATIENT

DRUGS (2)
  1. PRIMAXIN [Suspect]
     Dosage: IV
     Route: 042
  2. LEVAQUIN [Concomitant]

REACTIONS (2)
  - CARDIAC FAILURE CONGESTIVE [None]
  - TOXIC EPIDERMAL NECROLYSIS [None]
